FAERS Safety Report 23319253 (Version 1)
Quarter: 2023Q4

REPORT INFORMATION
  Report Type: Spontaneous
  Country: US (occurrence: None)
  Receive Date: 20231220
  Receipt Date: 20231220
  Transmission Date: 20240110
  Serious: Yes (Other)
  Sender: FDA-Public Use
  Company Number: 2023A283399

PATIENT

DRUGS (1)
  1. IMFINZI [Suspect]
     Active Substance: DURVALUMAB
     Route: 042

REACTIONS (1)
  - Non-small cell lung cancer [Unknown]
